FAERS Safety Report 4942130-1 (Version None)
Quarter: 2006Q1

REPORT INFORMATION
  Report Type: 
  Country: None (occurrence: None)
  Receive Date: 20060313
  Receipt Date: 20050707
  Transmission Date: 20060701
  Serious: No
  Sender: FDA-Public Use
  Company Number: US-GLAXOSMITHKLINE-A0565368A

PATIENT
  Age: 50 Year
  Sex: Female

DRUGS (5)
  1. NICORETTE [Suspect]
  2. NICORETTE [Suspect]
  3. NICORETTE OTC GUM, ORIGINAL [Suspect]
  4. NEUROMUSCULAR MEDICATION [Concomitant]
     Indication: MULTIPLE SCLEROSIS
  5. PAIN MEDICATION [Concomitant]

REACTIONS (3)
  - ABDOMINAL PAIN UPPER [None]
  - INTENTIONAL DRUG MISUSE [None]
  - NAUSEA [None]
